FAERS Safety Report 8291661 (Version 4)
Quarter: 2020Q3

REPORT INFORMATION
  Report Type: Report from Study
  Country: TW (occurrence: TW)
  Receive Date: 20111214
  Receipt Date: 20190619
  Transmission Date: 20201104
  Serious: Yes (Death, Hospitalization, Other)
  Sender: FDA-Public Use
  Company Number: TW-PFIZER INC-2011300243

PATIENT
  Age: 57 Year
  Sex: Male
  Weight: 62 kg

DRUGS (34)
  1. DIFENIDOL [Concomitant]
     Indication: VERTIGO
     Dosage: UNK
     Dates: start: 20111115, end: 20111117
  2. ZOPICLONE [Concomitant]
     Active Substance: ZOPICLONE
     Indication: INSOMNIA
     Dosage: UNK
     Dates: start: 20111119, end: 20111120
  3. BUTYLSCOPOLAMINE [Concomitant]
     Active Substance: BUTYLSCOPOLAMINE
     Indication: DIARRHOEA
     Dosage: UNK
     Dates: start: 20111119, end: 20111119
  4. PHENAZOPYRIDINE. [Suspect]
     Active Substance: PHENAZOPYRIDINE
     Indication: URINARY RETENTION
     Dosage: SINGLE DOSE
     Route: 048
     Dates: start: 20111207, end: 20111207
  5. AMOXICILLIN. [Suspect]
     Active Substance: AMOXICILLIN
     Indication: NASOPHARYNGITIS
     Dosage: 500 MG, SINGLE
     Route: 048
     Dates: start: 20111205, end: 20111205
  6. CLINDAMYCIN. [Suspect]
     Active Substance: CLINDAMYCIN
     Indication: NASOPHARYNGITIS
     Dosage: 150 MG, SINGLE
     Route: 048
     Dates: start: 20111205, end: 20111205
  7. ALFUZOSIN [Concomitant]
     Active Substance: ALFUZOSIN
     Indication: URINARY RETENTION
     Dosage: UNK
     Dates: start: 20111207, end: 20111207
  8. PARACETAMOL [Concomitant]
     Active Substance: ACETAMINOPHEN
     Indication: PYREXIA
     Dosage: UNK
     Dates: start: 20111115, end: 20111115
  9. CEFAZOLIN [Concomitant]
     Active Substance: CEFAZOLIN
     Indication: PYREXIA
     Dosage: UNK
     Dates: start: 20111115, end: 20111115
  10. MORPHINE SULFATE. [Concomitant]
     Active Substance: MORPHINE SULFATE
     Indication: PAIN
     Dosage: UNK
     Dates: start: 20110629, end: 20111115
  11. MAGNESIUM OXIDE. [Concomitant]
     Active Substance: MAGNESIUM OXIDE
     Indication: CONSTIPATION
     Dosage: UNK
     Dates: start: 20111116, end: 20111117
  12. ACETYLCYSTEINE. [Concomitant]
     Active Substance: ACETYLCYSTEINE
     Indication: COUGH
     Dosage: UNK
     Dates: start: 20111119, end: 20111123
  13. LORAZEPAM. [Concomitant]
     Active Substance: LORAZEPAM
     Indication: INSOMNIA
     Dosage: UNK
     Dates: start: 20111120, end: 20111120
  14. CRIZOTINIB [Suspect]
     Active Substance: CRIZOTINIB
     Indication: NON-SMALL CELL LUNG CANCER
     Dosage: 250 MG TWICE DAILY
     Route: 048
     Dates: start: 20111103, end: 20111208
  15. PROSULTIAMINE W/RIBOFLAVIN/ [Concomitant]
     Indication: URINARY RETENTION
     Dosage: UNK
     Dates: start: 20111207, end: 20111207
  16. URECHOLINE [Concomitant]
     Active Substance: BETHANECHOL CHLORIDE
     Indication: URINARY RETENTION
     Dosage: UNK
     Dates: start: 20111207, end: 20111207
  17. DIFENIDOL [Concomitant]
     Dosage: UNK
     Dates: start: 20111123, end: 20111208
  18. PIRACETAM [Concomitant]
     Active Substance: PIRACETAM
     Indication: VERTIGO
     Dosage: UNK
     Dates: start: 20111115, end: 20111115
  19. ZOLPIDEM [Concomitant]
     Active Substance: ZOLPIDEM TARTRATE
     Indication: INSOMNIA
     Dosage: UNK
     Dates: start: 20111116, end: 20111118
  20. ZOLPIDEM [Concomitant]
     Active Substance: ZOLPIDEM TARTRATE
     Dosage: UNK
     Dates: start: 20111121, end: 20111207
  21. FEXOFENADINE [Concomitant]
     Active Substance: FEXOFENADINE HYDROCHLORIDE
     Indication: RASH
     Dosage: UNK
     Dates: start: 20111116, end: 20111117
  22. PEOLIN [Concomitant]
     Indication: DIARRHOEA
     Dosage: UNK
     Dates: start: 20111122, end: 20111208
  23. CEPHALEXIN. [Concomitant]
     Active Substance: CEPHALEXIN
     Indication: PYREXIA
     Dosage: UNK
     Dates: start: 20111115, end: 20111115
  24. PROCHLORPERAZINE. [Concomitant]
     Active Substance: PROCHLORPERAZINE
     Indication: NAUSEA
     Dosage: UNK
     Dates: start: 20111119, end: 20111208
  25. LYSOZYME [Concomitant]
     Active Substance: LYSOZYME
     Indication: NASOPHARYNGITIS
     Dosage: UNK
     Dates: start: 20111205, end: 20111205
  26. DEXTROMETHORPHAN [Concomitant]
     Active Substance: DEXTROMETHORPHAN
     Indication: NASOPHARYNGITIS
     Dosage: UNK
     Dates: start: 20111205, end: 20111205
  27. FENTANYL CITRATE. [Concomitant]
     Active Substance: FENTANYL CITRATE
     Indication: PAIN
     Dosage: UNK
     Dates: start: 20111026, end: 20111115
  28. ESTAZOLAM. [Concomitant]
     Active Substance: ESTAZOLAM
     Indication: INSOMNIA
     Dosage: UNK
     Dates: start: 20111026, end: 20111115
  29. TAMSULOSIN [Concomitant]
     Active Substance: TAMSULOSIN
     Indication: URINARY RETENTION
     Dosage: UNK
     Dates: start: 20111116, end: 20111208
  30. ESTAZOLAM. [Concomitant]
     Active Substance: ESTAZOLAM
     Dosage: UNK
     Dates: start: 20111119, end: 20111119
  31. ESTAZOLAM. [Concomitant]
     Active Substance: ESTAZOLAM
     Dosage: UNK
     Dates: start: 20111121, end: 20111122
  32. FAMOTIDINE. [Concomitant]
     Active Substance: FAMOTIDINE
     Indication: PROPHYLAXIS
     Dosage: UNK
     Dates: start: 20111115, end: 20111115
  33. MEGESTROL ACETATE. [Concomitant]
     Active Substance: MEGESTROL ACETATE
     Indication: DECREASED APPETITE
     Dosage: UNK
     Dates: start: 20111116, end: 20111208
  34. SMECTITE [Concomitant]
     Active Substance: MONTMORILLONITE
     Indication: DIARRHOEA
     Dosage: UNK
     Dates: start: 20111118, end: 20111123

REACTIONS (1)
  - Liver injury [Fatal]

NARRATIVE: CASE EVENT DATE: 20111208
